FAERS Safety Report 7495412-6 (Version None)
Quarter: 2011Q2

REPORT INFORMATION
  Report Type: 
  Country: None (occurrence: None)
  Receive Date: 20110513
  Receipt Date: 20110428
  Transmission Date: 20111010
  Serious: Yes (Hospitalization, Other)
  Sender: FDA-Public Use
  Company Number: THQ2011A02227

PATIENT
  Age: 64 Year
  Sex: Female

DRUGS (2)
  1. ACTOS [Suspect]
  2. ATACAND HCT [Suspect]
     Dosage: CANDESARTAN PER ORAL
     Route: 048

REACTIONS (2)
  - RENAL FAILURE ACUTE [None]
  - LACTIC ACIDOSIS [None]
